FAERS Safety Report 8886291 (Version 2)
Quarter: 2013Q1

REPORT INFORMATION
  Report Type: Not Available
  Country: DK (occurrence: DK)
  Receive Date: 20121105
  Receipt Date: 20130228
  Transmission Date: 20140127
  Serious: Yes (Other)
  Sender: FDA-Public Use
  Company Number: DK-ASTELLAS-2012EU009682

PATIENT
  Age: 28 Year
  Sex: Female
  Weight: 60 kg

DRUGS (3)
  1. VESICARE [Suspect]
     Indication: POLLAKIURIA
     Dosage: 5 MG, UNKNOWN/D
     Route: 048
     Dates: start: 20091111, end: 20111215
  2. NOVYNETTE [Interacting]
     Indication: CONTRACEPTION
     Dosage: UNK
     Route: 048
     Dates: end: 20111215
  3. MASULIN [Interacting]
     Indication: POLLAKIURIA
     Dosage: 0.4 MG, UNKNOWN/D
     Route: 048
     Dates: start: 20091111, end: 20111215

REACTIONS (2)
  - Drug interaction [Unknown]
  - Pregnancy on oral contraceptive [Not Recovered/Not Resolved]
